FAERS Safety Report 17291947 (Version 1)
Quarter: 2020Q1

REPORT INFORMATION
  Report Type: Spontaneous
  Country: US (occurrence: US)
  Receive Date: 20200121
  Receipt Date: 20200121
  Transmission Date: 20200409
  Serious: Yes (Other)
  Sender: FDA-Public Use
  Company Number: US-BAYER-2019-221877

PATIENT
  Sex: Female

DRUGS (3)
  1. MIRENA [Suspect]
     Active Substance: LEVONORGESTREL
     Dosage: 20 MCG/24HR, CONT
     Route: 015
     Dates: start: 2013, end: 2015
  2. ESSURE [Concomitant]
     Active Substance: DEVICE
     Dosage: UNK
     Dates: start: 2011
  3. MIRENA [Suspect]
     Active Substance: LEVONORGESTREL

REACTIONS (1)
  - Embedded device [None]
